FAERS Safety Report 9086541 (Version 2)
Quarter: 2013Q1

REPORT INFORMATION
  Report Type: Spontaneous
  Country: US (occurrence: US)
  Receive Date: 20130131
  Receipt Date: 20130226
  Transmission Date: 20140127
  Serious: Yes (Other)
  Sender: FDA-Public Use
  Company Number: US-ROXANE LABORATORIES, INC.-2013-RO-00171RO

PATIENT
  Age: 61 Year
  Sex: Female

DRUGS (2)
  1. FLECAINIDE [Suspect]
     Indication: ATRIAL FIBRILLATION
     Dosage: 150 MG
     Route: 048
     Dates: start: 20130124
  2. APRESOLINE [Concomitant]

REACTIONS (2)
  - Atrial fibrillation [Not Recovered/Not Resolved]
  - Product quality issue [Unknown]
